FAERS Safety Report 9132630 (Version 6)
Quarter: 2014Q2

REPORT INFORMATION
  Report Type: Report from Study
  Country: DE (occurrence: DE)
  Receive Date: 20130301
  Receipt Date: 20140501
  Transmission Date: 20141212
  Serious: Yes (Hospitalization)
  Sender: FDA-Public Use
  Company Number: DE-009507513-1303DEU000004

PATIENT
  Age: 53 Year
  Sex: Female

DRUGS (5)
  1. VICTRELIS [Suspect]
     Indication: CHRONIC HEPATITIS C
     Dosage: 2400 MG, QD
     Route: 048
     Dates: start: 20120617, end: 20120807
  2. RIBAVIRIN [Suspect]
     Indication: CHRONIC HEPATITIS C
     Dosage: 800 UNIT NOT REPORTED, 1 IN 1 DAY
     Route: 048
     Dates: start: 20120520, end: 20120807
  3. PEGINTERFERON ALFA-2A [Suspect]
     Indication: CHRONIC HEPATITIS C
     Dosage: 180 UNIT NOT REPORTED 1 TO 1 WEEK
     Route: 058
     Dates: start: 20120520, end: 20120807
  4. ZOLPIDEM TARTRATE [Concomitant]
     Indication: SLEEP DISORDER
     Dosage: 5 MG, PRN
     Route: 048
     Dates: start: 20110117
  5. TRIAMCINOLONE ACETONIDE [Concomitant]
     Indication: ERYTHEMA
     Dosage: UNK
     Route: 061
     Dates: start: 20120719, end: 20120807

REACTIONS (2)
  - Leukopenia [Recovered/Resolved]
  - Mucosal inflammation [Recovered/Resolved]
